FAERS Safety Report 5377970-0 (Version None)
Quarter: 2007Q2

REPORT INFORMATION
  Report Type: 
  Country: None (occurrence: None)
  Receive Date: 20070629
  Receipt Date: 20070620
  Transmission Date: 20071010
  Serious: Yes (Death)
  Sender: FDA-Public Use
  Company Number: 2007US001423

PATIENT
  Age: 88 Year
  Sex: Male
  Weight: 68 kg

DRUGS (3)
  1. AMEVIVE [Suspect]
     Indication: PSORIASIS
     Dosage: INTRAMUSCULAR
     Route: 030
     Dates: start: 20060111
  2. LIPID LOWERING AGENT [Concomitant]
  3. ANTICOAGULANT [Concomitant]

REACTIONS (1)
  - DEATH [None]
